FAERS Safety Report 8407419-2 (Version None)
Quarter: 2012Q2

REPORT INFORMATION
  Report Type: 
  Country: None (occurrence: None)
  Receive Date: 20120604
  Receipt Date: 20120524
  Transmission Date: 20120825
  Serious: Yes (Hospitalization, Other)
  Sender: FDA-Public Use
  Company Number: AU-ASTRAZENECA-2012SE33441

PATIENT
  Age: 25803 Day
  Sex: Male
  Weight: 71 kg

DRUGS (7)
  1. BRILINTA [Suspect]
     Route: 048
     Dates: start: 20120101, end: 20120113
  2. ASPIRIN [Concomitant]
     Indication: CORONARY ARTERY DISEASE
     Route: 048
  3. METHOTREXATE [Concomitant]
     Indication: RHEUMATOID ARTHRITIS
     Route: 048
  4. ARAVA [Concomitant]
     Indication: RHEUMATOID ARTHRITIS
     Route: 048
  5. PREDNISOLONE [Concomitant]
     Indication: RHEUMATOID ARTHRITIS
     Route: 048
  6. ANTIHYPERTENSIVE MEDICATIONS [Concomitant]
  7. METOPROLOL TARTRATE [Concomitant]

REACTIONS (3)
  - RECTAL HAEMORRHAGE [None]
  - ABDOMINAL PAIN [None]
  - EPISTAXIS [None]
